FAERS Safety Report 12242735 (Version 2)
Quarter: 2017Q1

REPORT INFORMATION
  Report Type: Spontaneous
  Country: US (occurrence: US)
  Receive Date: 20160406
  Receipt Date: 20170308
  Transmission Date: 20170428
  Serious: Yes (Other)
  Sender: FDA-Public Use
  Company Number: US-ELI_LILLY_AND_COMPANY-US201604000346

PATIENT
  Sex: Female

DRUGS (5)
  1. CYMBALTA [Suspect]
     Active Substance: DULOXETINE HYDROCHLORIDE
     Indication: PAIN
     Dosage: 30 MG, QD
     Route: 065
     Dates: start: 20081007
  2. CYMBALTA [Suspect]
     Active Substance: DULOXETINE HYDROCHLORIDE
     Dosage: 30 MG, QD
     Route: 065
     Dates: start: 20110614
  3. CYMBALTA [Suspect]
     Active Substance: DULOXETINE HYDROCHLORIDE
     Dosage: 60 MG, QD
     Route: 065
     Dates: start: 20110712, end: 201202
  4. CYMBALTA [Suspect]
     Active Substance: DULOXETINE HYDROCHLORIDE
     Dosage: UNK, UNKNOWN
     Route: 065
     Dates: start: 20120207, end: 20120925
  5. CYMBALTA [Suspect]
     Active Substance: DULOXETINE HYDROCHLORIDE
     Dosage: 60 MG, QD
     Route: 065
     Dates: start: 20081021, end: 20081223

REACTIONS (14)
  - Drug withdrawal syndrome [Unknown]
  - Dizziness [Unknown]
  - Sleep disorder [Unknown]
  - Mood swings [Unknown]
  - Affect lability [Unknown]
  - Intentional product misuse [Unknown]
  - Nausea [Unknown]
  - Dysphoria [Unknown]
  - Nightmare [Unknown]
  - Vertigo [Unknown]
  - Loss of consciousness [Unknown]
  - Paraesthesia [Unknown]
  - Agitation [Unknown]
  - Fatigue [Unknown]
